FAERS Safety Report 9554448 (Version 3)
Quarter: 2013Q4

REPORT INFORMATION
  Report Type: Spontaneous
  Country: JP (occurrence: JP)
  Receive Date: 20130925
  Receipt Date: 20131227
  Transmission Date: 20140711
  Serious: Yes (Hospitalization)
  Sender: FDA-Public Use
  Company Number: JP-MERCK-1309JPN010993

PATIENT
  Age: 57 Year
  Sex: Female

DRUGS (23)
  1. REFLEX [Suspect]
     Indication: DEPRESSION
     Dosage: 15 MG DAILY
     Route: 048
     Dates: start: 20130731, end: 20130806
  2. REFLEX [Suspect]
     Dosage: 30 MG DAILY
     Route: 048
     Dates: start: 20130807, end: 20130820
  3. REFLEX [Suspect]
     Dosage: 45 MG DAILY
     Route: 048
     Dates: start: 20130821, end: 20130822
  4. REFLEX [Suspect]
     Dosage: 30 MG DAILY
     Route: 048
     Dates: start: 20130823, end: 20130906
  5. REFLEX [Suspect]
     Dosage: 15 MG DAILY
     Route: 048
     Dates: start: 20130907, end: 20131008
  6. ARIPIPRAZOLE [Concomitant]
     Indication: DRUG LEVEL
     Dosage: 3 MG, QD
     Route: 048
     Dates: start: 20130822, end: 20130827
  7. ARIPIPRAZOLE [Concomitant]
     Dosage: 6 UNK, UNK
     Route: 048
     Dates: start: 20130828
  8. LORAZEPAM [Concomitant]
     Indication: ANXIETY
     Dosage: 1.0 MG
     Route: 048
     Dates: start: 20130817, end: 20130823
  9. LORAZEPAM [Concomitant]
     Dosage: 1.5 MG
     Route: 048
     Dates: start: 20130824
  10. ASPIRIN [Concomitant]
     Indication: PRODUCT USED FOR UNKNOWN INDICATION
     Dosage: 100 MG
     Route: 048
     Dates: start: 20130731
  11. OLMESARTAN MEDOXOMIL [Concomitant]
     Indication: PRODUCT USED FOR UNKNOWN INDICATION
     Dosage: 20 MG
     Route: 048
     Dates: start: 20130731, end: 20131101
  12. AMLODIPINE BESYLATE [Concomitant]
     Indication: PRODUCT USED FOR UNKNOWN INDICATION
     Dosage: UNKNOWN
     Route: 048
  13. ROSUVASTATIN CALCIUM [Concomitant]
     Indication: HYPERLIPIDAEMIA
     Dosage: 2.5 MG
     Route: 048
     Dates: start: 20130822
  14. FAMOTIDINE [Concomitant]
     Indication: PRODUCT USED FOR UNKNOWN INDICATION
     Dosage: 10 MG
     Route: 048
     Dates: start: 20130731
  15. CLOSTRIDIUM BUTYRICUM [Concomitant]
     Indication: PRODUCT USED FOR UNKNOWN INDICATION
     Dosage: UNKNOWN
     Route: 048
  16. DIAZEPAM [Concomitant]
     Indication: PRODUCT USED FOR UNKNOWN INDICATION
     Dosage: 2 MG
     Route: 048
     Dates: start: 20130731, end: 20130824
  17. ZOLPIDEM TARTRATE [Concomitant]
     Indication: INSOMNIA
     Dosage: 5 MG
     Route: 048
     Dates: start: 20130824
  18. DULOXETINE HYDROCHLORIDE [Concomitant]
     Indication: DEPRESSION
     Dosage: 20 MG
     Route: 048
     Dates: start: 20131009
  19. BIMATOPROST [Concomitant]
     Indication: INTRAOCULAR PRESSURE INCREASED
     Dosage: UNK, ONCE
     Route: 031
     Dates: start: 20130820, end: 20130827
  20. DORZOLAMIDE HYDROCHLORIDE [Concomitant]
     Indication: INTRAOCULAR PRESSURE INCREASED
     Dosage: UNK, TID
     Route: 031
     Dates: start: 20130820
  21. TRAVOPROST [Concomitant]
     Indication: INTRAOCULAR PRESSURE INCREASED
     Dosage: UNK, ONCE
     Route: 031
     Dates: start: 20130827
  22. BRIMONIDINE TARTRATE [Concomitant]
     Indication: INTRAOCULAR PRESSURE INCREASED
     Dosage: UNK, BID
     Route: 031
     Dates: start: 20130827
  23. BETAMETHASONE SODIUM PHOSPHATE [Concomitant]
     Indication: OCULAR SARCOIDOSIS
     Dosage: UNK, QID
     Route: 031
     Dates: start: 20131015

REACTIONS (2)
  - Inappropriate antidiuretic hormone secretion [Recovered/Resolved]
  - Intraocular pressure increased [Recovering/Resolving]
